FAERS Safety Report 7493313-0 (Version None)
Quarter: 2011Q2

REPORT INFORMATION
  Report Type: 
  Country: None (occurrence: None)
  Receive Date: 20110513
  Receipt Date: 20110428
  Transmission Date: 20111010
  Serious: Yes (Other)
  Sender: FDA-Public Use
  Company Number: 032200

PATIENT
  Age: 15 Year
  Sex: Female

DRUGS (1)
  1. KEPPRA [Suspect]
     Indication: GRAND MAL CONVULSION
     Dosage: 1750 MG BID

REACTIONS (4)
  - THERMAL BURN [None]
  - AGGRESSION [None]
  - MOOD ALTERED [None]
  - GRAND MAL CONVULSION [None]
